FAERS Safety Report 18214709 (Version 1)
Quarter: 2020Q3

REPORT INFORMATION
  Report Type: Spontaneous
  Country: BR (occurrence: BR)
  Receive Date: 20200831
  Receipt Date: 20200831
  Transmission Date: 20201103
  Serious: Yes (Death)
  Sender: FDA-Public Use
  Company Number: BR-JNJFOC-20200833699

PATIENT

DRUGS (2)
  1. STELARA [Suspect]
     Active Substance: USTEKINUMAB
     Indication: CROHN^S DISEASE
     Route: 058
  2. THALIDOMIDE [Suspect]
     Active Substance: THALIDOMIDE
     Indication: ANORECTAL DISORDER

REACTIONS (2)
  - Sepsis [Fatal]
  - Abdominal distension [Fatal]
